FAERS Safety Report 4975285-3 (Version None)
Quarter: 2006Q2

REPORT INFORMATION
  Report Type: 
  Country: None (occurrence: None)
  Receive Date: 20060418
  Receipt Date: 20050817
  Transmission Date: 20061013
  Serious: Yes (Hospitalization, Other)
  Sender: FDA-Public Use
  Company Number: US-MERCK-0508USA03129

PATIENT
  Age: 78 Year
  Sex: Female
  Weight: 77 kg

DRUGS (16)
  1. VIOXX [Suspect]
     Indication: ARTHRITIS
     Route: 048
     Dates: start: 20010427, end: 20040920
  2. VIOXX [Suspect]
     Route: 048
     Dates: start: 20010427, end: 20040920
  3. FLOVENT [Concomitant]
     Route: 065
  4. SEREVENT [Concomitant]
     Route: 065
  5. ATROVENT [Concomitant]
     Route: 065
  6. ALBUTEROL [Concomitant]
     Route: 065
  7. ACCOLATE [Concomitant]
     Route: 065
  8. FUROSEMIDE [Concomitant]
     Route: 065
  9. VERAPAMIL [Concomitant]
     Route: 065
  10. POTASSIUM CHLORIDE [Concomitant]
     Route: 065
  11. GLYBURIDE [Concomitant]
     Route: 065
  12. VANCENASE AQ NASAL SPRAY [Concomitant]
     Route: 065
  13. TAGAMET [Concomitant]
     Route: 065
  14. MONOPRIL [Concomitant]
     Route: 065
  15. OS-CAL [Concomitant]
     Route: 065
  16. PRILOSEC [Concomitant]
     Route: 048

REACTIONS (35)
  - ANGINA PECTORIS [None]
  - AORTIC ARTERIOSCLEROSIS [None]
  - CARDIAC FAILURE CONGESTIVE [None]
  - CATARACT [None]
  - CELLULITIS [None]
  - CEREBROVASCULAR ACCIDENT [None]
  - CHRONIC OBSTRUCTIVE PULMONARY DISEASE [None]
  - COMPUTERISED TOMOGRAM ABNORMAL [None]
  - CONSTIPATION [None]
  - CORONARY ARTERY OCCLUSION [None]
  - COUGH [None]
  - DEPRESSION [None]
  - DIABETES MELLITUS [None]
  - DIASTOLIC DYSFUNCTION [None]
  - DIZZINESS [None]
  - DYSPNOEA [None]
  - EROSIVE OESOPHAGITIS [None]
  - GASTROOESOPHAGEAL REFLUX DISEASE [None]
  - GOUT [None]
  - HEADACHE [None]
  - HYPOAESTHESIA [None]
  - INNER EAR DISORDER [None]
  - MEDIASTINAL DISORDER [None]
  - MUSCULOSKELETAL DISCOMFORT [None]
  - MYOCARDIAL INFARCTION [None]
  - PALPITATIONS [None]
  - PNEUMONIA [None]
  - POSTERIOR CAPSULE OPACIFICATION [None]
  - PULMONARY FIBROSIS [None]
  - RETINAL DEGENERATION [None]
  - SCOLIOSIS [None]
  - STRESS INCONTINENCE [None]
  - TACHYCARDIA [None]
  - TREMOR [None]
  - VENTRICULAR HYPERTROPHY [None]
